FAERS Safety Report 4388591-0 (Version None)
Quarter: 2004Q2

REPORT INFORMATION
  Report Type: 
  Country: None (occurrence: None)
  Receive Date: 20040624
  Receipt Date: 20040616
  Transmission Date: 20050107
  Serious: Yes (Hospitalization)
  Sender: FDA-Public Use
  Company Number: 032-0981-990047

PATIENT
  Age: 55 Year
  Sex: Male
  Weight: 89 kg

DRUGS (10)
  1. ATORVASTATIN CALCIUM [Suspect]
     Indication: HYPERCHOLESTEROLAEMIA
     Dosage: SEE IMAGE
     Route: 048
     Dates: start: 19981022, end: 19981217
  2. ATORVASTATIN CALCIUM [Suspect]
     Indication: HYPERCHOLESTEROLAEMIA
     Dosage: SEE IMAGE
     Route: 048
     Dates: start: 19981218
  3. ATENOLOL [Concomitant]
  4. LISINOPRIL [Concomitant]
  5. ISOSORBIDE DINITRATE [Concomitant]
  6. ACETYLSALICYLIC ACID SRT [Concomitant]
  7. CLORAZEPATE DIPOTASSIUM [Concomitant]
  8. ALPRAZOLAM [Concomitant]
  9. CITALOPRAM (CITALOPRAM) [Concomitant]
  10. PARACETAMOL (PARACETAMOL) [Concomitant]

REACTIONS (1)
  - BASAL CELL CARCINOMA [None]
